FAERS Safety Report 21836904 (Version 3)
Quarter: 2023Q1

REPORT INFORMATION
  Report Type: Report from Study
  Country: US (occurrence: US)
  Receive Date: 20230109
  Receipt Date: 20230217
  Transmission Date: 20230418
  Serious: Yes (Other)
  Sender: FDA-Public Use
  Company Number: US-002147023-NVSC2023US003088

PATIENT
  Sex: Male

DRUGS (1)
  1. AFINITOR [Suspect]
     Active Substance: EVEROLIMUS
     Indication: Carcinoid tumour
     Dosage: 5 MG, QD
     Route: 048
     Dates: start: 202209

REACTIONS (3)
  - Spinal cord neoplasm [Recovering/Resolving]
  - Pain [Recovering/Resolving]
  - Product dose omission issue [Unknown]
